FAERS Safety Report 11454860 (Version 1)
Quarter: 2015Q3

REPORT INFORMATION
  Report Type: Spontaneous
  Country: US (occurrence: US)
  Receive Date: 20150831
  Receipt Date: 20150831
  Transmission Date: 20151125
  Serious: No
  Sender: FDA-Public Use
  Company Number: US-ELI_LILLY_AND_COMPANY-US201005004197

PATIENT
  Sex: Female

DRUGS (2)
  1. CYMBALTA [Suspect]
     Active Substance: DULOXETINE HYDROCHLORIDE
     Indication: FIBROMYALGIA
     Dosage: 30 MG, UNK
  2. LYRICA [Concomitant]
     Active Substance: PREGABALIN

REACTIONS (6)
  - Dizziness [Unknown]
  - Vision blurred [Unknown]
  - Hyperhidrosis [Unknown]
  - Balance disorder [Unknown]
  - Nausea [Unknown]
  - Feeling abnormal [Unknown]
